FAERS Safety Report 7510524-6 (Version None)
Quarter: 2011Q2

REPORT INFORMATION
  Report Type: 
  Country: None (occurrence: None)
  Receive Date: 20110530
  Receipt Date: 20110525
  Transmission Date: 20111010
  Serious: Yes (Hospitalization, Disabling)
  Sender: FDA-Public Use
  Company Number: BR-BIOGENIDEC-2010BI022924

PATIENT
  Age: 22 Year
  Sex: Male
  Weight: 72 kg

DRUGS (1)
  1. TYSABRI [Suspect]
     Indication: MULTIPLE SCLEROSIS
     Route: 042
     Dates: start: 20090915, end: 20100425

REACTIONS (5)
  - MOTOR DYSFUNCTION [None]
  - COGNITIVE DISORDER [None]
  - PARAPARESIS [None]
  - MEMORY IMPAIRMENT [None]
  - CEREBELLAR ATAXIA [None]
